FAERS Safety Report 4425851-9 (Version None)
Quarter: 2004Q3

REPORT INFORMATION
  Report Type: 
  Country: None (occurrence: None)
  Receive Date: 20040719
  Receipt Date: 20040419
  Transmission Date: 20050211
  Serious: No
  Sender: FDA-Public Use
  Company Number: A03200401213

PATIENT
  Age: 61 Year
  Sex: Male

DRUGS (9)
  1. UROXATRAL [Suspect]
     Indication: BENIGN PROSTATIC HYPERPLASIA
     Dosage: 10 MG OD - ORAL
     Route: 048
     Dates: start: 20040211, end: 20040220
  2. RAMIPRIL [Concomitant]
  3. ALPRAZOLAM [Concomitant]
  4. ROSIGLITAZONE MALEATE [Concomitant]
  5. CETIRIZINE HCL [Concomitant]
  6. FENOFIBRATE [Concomitant]
  7. ACETYLSALICYLIC ACID [Concomitant]
  8. NICOTINIC ACID [Concomitant]
  9. VITAMINS NOS [Concomitant]

REACTIONS (4)
  - DIARRHOEA [None]
  - DIZZINESS [None]
  - FATIGUE [None]
  - HEADACHE [None]
